FAERS Safety Report 6967883-2 (Version None)
Quarter: 2010Q3

REPORT INFORMATION
  Report Type: 
  Country: None (occurrence: None)
  Receive Date: 20100907
  Receipt Date: 20100524
  Transmission Date: 20110219
  Serious: No
  Sender: FDA-Public Use
  Company Number: A0861066A

PATIENT
  Age: 50 Year
  Sex: Male

DRUGS (7)
  1. REQUIP [Suspect]
     Indication: PARKINSON'S DISEASE
     Dosage: 1TAB SINGLE DOSE
     Route: 048
     Dates: start: 20100224
  2. REQUIP XL [Suspect]
     Indication: PARKINSON'S DISEASE
     Dosage: 2MG PER DAY
     Route: 048
     Dates: start: 20091001
  3. ANTIOXIDANTS [Concomitant]
  4. DIETARY SUPPLEMENT [Concomitant]
  5. FISH OIL [Concomitant]
  6. QUERCETIN [Concomitant]
  7. CURCUMIN [Concomitant]

REACTIONS (7)
  - ASTHENIA [None]
  - DRUG INEFFECTIVE [None]
  - FEELING ABNORMAL [None]
  - HEADACHE [None]
  - ILL-DEFINED DISORDER [None]
  - PRESYNCOPE [None]
  - TREMOR [None]
